FAERS Safety Report 8333248-4 (Version None)
Quarter: 2012Q1

REPORT INFORMATION
  Report Type: 
  Country: None (occurrence: None)
  Receive Date: 20120327
  Receipt Date: 20110401
  Transmission Date: 20120608
  Serious: Yes (Other)
  Sender: FDA-Public Use
  Company Number: PHHY2011US23162

PATIENT
  Age: 79 Year
  Sex: Female

DRUGS (2)
  1. BENADRYL ^ACHE^ (AMMONIUM CHLORIDE, DIPHENHYDRAMINE HYDROCHLORIDE, MEN [Concomitant]
  2. GLEEVEC [Suspect]
     Indication: CHRONIC MYELOID LEUKAEMIA
     Dosage: 400 MG, DAILY, 300 MG, DAILY, ORAL
     Route: 048
     Dates: start: 20090223

REACTIONS (6)
  - GENE MUTATION IDENTIFICATION TEST POSITIVE [None]
  - BACK PAIN [None]
  - PERIORBITAL OEDEMA [None]
  - MYALGIA [None]
  - RASH [None]
  - PRURITUS [None]
